FAERS Safety Report 16691728 (Version 1)
Quarter: 2019Q3

REPORT INFORMATION
  Report Type: Spontaneous
  Country: US (occurrence: US)
  Receive Date: 20190625
  Receipt Date: 20190625
  Transmission Date: 20191004
  Serious: No
  Sender: FDA-Public Use
  Company Number: None

PATIENT
  Age: 56 Year
  Sex: Female

DRUGS (2)
  1. ESTRADIOL 0.05MG/24H [Suspect]
     Active Substance: ESTRADIOL
     Indication: AUTONOMIC NERVOUS SYSTEM IMBALANCE
     Dosage: ?          OTHER DOSE:0.05MG/24H;?
     Route: 062
     Dates: start: 20170405
  2. ESTRADIOL 0.05MG [Suspect]
     Active Substance: ESTRADIOL
     Indication: AUTONOMIC NERVOUS SYSTEM IMBALANCE
     Dosage: ?          OTHER DOSE:0.05MG/24H;?
     Route: 062
     Dates: start: 20110125, end: 20110202

REACTIONS (2)
  - Application site pruritus [None]
  - Application site rash [None]

NARRATIVE: CASE EVENT DATE: 20170405
